FAERS Safety Report 21653073 (Version 2)
Quarter: 2023Q2

REPORT INFORMATION
  Report Type: Spontaneous
  Country: KR (occurrence: KR)
  Receive Date: 20221128
  Receipt Date: 20230602
  Transmission Date: 20230721
  Serious: Yes (Other)
  Sender: FDA-Public Use
  Company Number: KR-GILEAD-2022-0606397

PATIENT

DRUGS (2)
  1. VEKLURY [Suspect]
     Active Substance: REMDESIVIR
     Indication: Product used for unknown indication
     Dosage: 200 MG LOADING DOSE DAY 1
     Route: 065
     Dates: start: 20221119, end: 20221119
  2. VEKLURY [Suspect]
     Active Substance: REMDESIVIR
     Dosage: 100 MG MAINTENANCE DOSE DAY 2
     Route: 065
     Dates: start: 20221120, end: 20221120

REACTIONS (1)
  - Renal impairment [Unknown]
